FAERS Safety Report 9002565 (Version 1)
Quarter: 2013Q1

REPORT INFORMATION
  Report Type: Spontaneous
  Country: US (occurrence: US)
  Receive Date: 20130107
  Receipt Date: 20130107
  Transmission Date: 20140127
  Serious: Yes (Hospitalization)
  Sender: FDA-Public Use
  Company Number: US-PFIZER INC-2013001332

PATIENT
  Age: 57 Year
  Sex: Male
  Weight: 82.09 kg

DRUGS (4)
  1. SOLU-MEDROL [Suspect]
     Indication: MULTIPLE SCLEROSIS
     Dosage: 1 IN 1 M (NOT OTHERWISE SPECIFIED)
     Route: 042
  2. REBIF [Suspect]
     Indication: MULTIPLE SCLEROSIS
     Dosage: UNK
     Dates: start: 200712
  3. REBIF [Suspect]
     Dosage: 44 UG, THREE TIMES PER WEEK
     Route: 058
     Dates: start: 20080722
  4. REBIF [Suspect]
     Dosage: UNK
     Dates: start: 201211

REACTIONS (3)
  - Osteonecrosis [Recovering/Resolving]
  - Arthralgia [Recovering/Resolving]
  - Arthropathy [Unknown]
